FAERS Safety Report 14666041 (Version 3)
Quarter: 2018Q2

REPORT INFORMATION
  Report Type: Report from Study
  Country: US (occurrence: US)
  Receive Date: 20180321
  Receipt Date: 20180517
  Transmission Date: 20180711
  Serious: Yes (Other)
  Sender: FDA-Public Use
  Company Number: US-MALLINCKRODT-T201800836

PATIENT
  Sex: Male

DRUGS (2)
  1. REPOSITORY CORTICOTROPIN INJECTION [Suspect]
     Active Substance: CORTICOTROPIN
     Indication: RHEUMATOID ARTHRITIS
     Dosage: 80 UNITS / 1 ML, MONDAY/WEDNESDAY/FRIDAY
     Route: 058
     Dates: start: 20180209
  2. REPOSITORY CORTICOTROPIN INJECTION [Suspect]
     Active Substance: CORTICOTROPIN
     Dosage: 40 UNITS / .5 ML MONDAY/ WEDNESDAY AND FRIDAY
     Route: 058
     Dates: start: 2018

REACTIONS (4)
  - Dialysis [Unknown]
  - Drug dose omission [Unknown]
  - Joint contracture [Unknown]
  - Renal disorder [Unknown]
